FAERS Safety Report 7248631-8 (Version None)
Quarter: 2011Q1

REPORT INFORMATION
  Report Type: 
  Country: None (occurrence: None)
  Receive Date: 20110128
  Receipt Date: 20110113
  Transmission Date: 20110831
  Serious: Yes (Hospitalization, Other)
  Sender: FDA-Public Use
  Company Number: FR-BAYER-2010-000120

PATIENT
  Sex: Female

DRUGS (17)
  1. XARELTO [Suspect]
     Indication: KNEE ARTHROPLASTY
     Dosage: 10 MG, QD
     Route: 048
     Dates: start: 20101029, end: 20101102
  2. MARCAINE [Concomitant]
     Indication: SPINAL ANAESTHESIA
     Dosage: 10 MG, ONCE
     Route: 037
     Dates: start: 20101029, end: 20101029
  3. CEFAMANDOLE SODIUM [Concomitant]
     Dosage: 750 MG, QID
     Route: 042
     Dates: start: 20101029, end: 20101030
  4. CARBOSYMAG [Concomitant]
  5. ACETYLSALICYLIC ACID LYSINATE [Interacting]
     Dosage: 1 DF, QD
  6. CLONIDINE HCL [Concomitant]
     Indication: SPINAL ANAESTHESIA
     Dosage: 30 ?G, ONCE
     Route: 042
     Dates: start: 20101029, end: 20101029
  7. CHIROCAINE [Concomitant]
     Dosage: 8 ML, Q1HR
     Route: 042
     Dates: start: 20101029, end: 20101031
  8. ACETYLSALICYLIC ACID/PRAVASTATIN SODIUM [Interacting]
     Dosage: 1 DF, QD
     Route: 048
  9. OXYCODONE HCL [Concomitant]
     Dosage: UNK
     Route: 048
     Dates: start: 20101030, end: 20101102
  10. DAFALGAN [Concomitant]
     Dosage: 1 G, TID
     Route: 048
     Dates: start: 20101029
  11. AMLOR [Concomitant]
  12. EXACYL [Concomitant]
     Dosage: 1 G, Q4HR
     Route: 042
     Dates: start: 20101029, end: 20101030
  13. DROPERIDOL [Concomitant]
     Dosage: UNK
     Route: 042
     Dates: start: 20101029, end: 20101030
  14. IKOREL [Concomitant]
     Dosage: 0.5 DF, BID
     Route: 048
  15. EPHEDRINE [Concomitant]
     Dosage: 9 MG, UNK
     Dates: start: 20101029, end: 20101029
  16. APROVEL [Concomitant]
     Indication: HYPERTENSION
     Dosage: 1 DF, QD
     Route: 048
  17. MORPHINE [Concomitant]
     Dosage: 10 MG, Q4HR
     Route: 042
     Dates: start: 20101029, end: 20101030

REACTIONS (5)
  - PAIN IN EXTREMITY [None]
  - ANAEMIA [None]
  - ECCHYMOSIS [None]
  - DEEP VEIN THROMBOSIS [None]
  - DRUG INEFFECTIVE [None]
